FAERS Safety Report 4970937-3 (Version None)
Quarter: 2006Q2

REPORT INFORMATION
  Report Type: 
  Country: None (occurrence: None)
  Receive Date: 20060411
  Receipt Date: 20060411
  Transmission Date: 20061013
  Serious: Yes (Life-Threatening, Hospitalization)
  Sender: FDA-Public Use
  Company Number: None

PATIENT
  Age: 49 Year
  Sex: Female
  Weight: 61.2356 kg

DRUGS (1)
  1. WELLBUTRIN XL [Suspect]
     Dosage: 150 MG    1-2 TIMES/DAY   PO
     Route: 048
     Dates: start: 20060308, end: 20060330

REACTIONS (6)
  - ANXIETY [None]
  - HEADACHE [None]
  - INCORRECT DOSE ADMINISTERED [None]
  - INTRACRANIAL PRESSURE INCREASED [None]
  - ISCHAEMIC STROKE [None]
  - SENSORY LOSS [None]
